FAERS Safety Report 8618894 (Version 2)
Quarter: 2012Q4

REPORT INFORMATION
  Report Type: 
  Country: US (occurrence: US)
  Receive Date: 20120618
  Receipt Date: 20121026
  Transmission Date: 20130627
  Serious: Yes (Hospitalization, Disabling)
  Sender: FDA-Public Use
  Company Number: US-BAYER-2012-058079

PATIENT
  Age: 17 Year
  Sex: Female
  Weight: 131.52 kg

DRUGS (7)
  1. YASMIN [Suspect]
     Indication: MENSTRUAL CYCLE MANAGEMENT
     Dosage: UNK
     Dates: start: 200601, end: 200607
  2. YASMIN [Suspect]
     Indication: PREMENSTRUAL SYNDROME
     Dosage: UNK
     Dates: start: 200809
  3. OCELLA [Suspect]
     Indication: MENSTRUAL CYCLE MANAGEMENT
     Dosage: UNK
     Dates: start: 200807
  4. OCELLA [Suspect]
     Indication: PREMENSTRUAL SYNDROME
  5. ALBUTEROL [Concomitant]
     Dosage: UNK, only use as needed
  6. NSAID^S [Concomitant]
     Dosage: UNK, as needed
  7. FEMCON FE [Concomitant]
     Indication: MENSTRUAL CYCLE MANAGEMENT

REACTIONS (5)
  - Cholecystitis [None]
  - Injury [None]
  - Abdominal pain [None]
  - Biliary dyskinesia [None]
  - Emotional distress [None]
